FAERS Safety Report 9136861 (Version 2)
Quarter: 2013Q1

REPORT INFORMATION
  Report Type: Spontaneous
  Country: ES (occurrence: FR)
  Receive Date: 20130304
  Receipt Date: 20130313
  Transmission Date: 20140127
  Serious: Yes (Other)
  Sender: FDA-Public Use
  Company Number: FR-PFIZER INC-2013069325

PATIENT
  Age: 20 Year
  Sex: Male

DRUGS (3)
  1. PHENYTOIN SODIUM [Suspect]
     Dosage: UNK
  2. PROPYPHENAZONE [Concomitant]
     Dosage: UNK
  3. DIPHENYLHYDANTOIN [Concomitant]
     Dosage: UNK

REACTIONS (10)
  - Suicide attempt [Unknown]
  - Poisoning [Unknown]
  - Vomiting [Unknown]
  - Ophthalmoplegia [Recovered/Resolved]
  - Cerebellar syndrome [Recovered/Resolved]
  - Ataxia [Recovered/Resolved]
  - Disturbance in attention [Recovered/Resolved]
  - Dysarthria [Recovered/Resolved]
  - Agitation [Unknown]
  - Hallucination [Unknown]
